FAERS Safety Report 19898107 (Version 1)
Quarter: 2021Q3

REPORT INFORMATION
  Report Type: Report from Study
  Country: TN (occurrence: TN)
  Receive Date: 20210929
  Receipt Date: 20210929
  Transmission Date: 20211014
  Serious: Yes (Other)
  Sender: FDA-Public Use
  Company Number: TN-INCYTE CORPORATION-2021IN008751

PATIENT

DRUGS (1)
  1. JAKAVI [Suspect]
     Active Substance: RUXOLITINIB
     Indication: PRIMARY MYELOFIBROSIS
     Dosage: 20 MG/KG, BID
     Route: 048
     Dates: start: 20210715

REACTIONS (9)
  - Hypoaesthesia [Unknown]
  - Skin discolouration [Unknown]
  - Paraesthesia [Unknown]
  - Gait disturbance [Unknown]
  - Hypoglycaemia [Unknown]
  - Vision blurred [Unknown]
  - Oedema peripheral [Recovered/Resolved with Sequelae]
  - Pain in extremity [Recovered/Resolved]
  - Abdominal pain [Unknown]

NARRATIVE: CASE EVENT DATE: 20210724
